FAERS Safety Report 17224694 (Version 1)
Quarter: 2020Q1

REPORT INFORMATION
  Report Type: Spontaneous
  Country: IN (occurrence: IN)
  Receive Date: 20200102
  Receipt Date: 20200102
  Transmission Date: 20200409
  Serious: Yes (Other)
  Sender: FDA-Public Use
  Company Number: IN-PFIZER INC-2019557345

PATIENT
  Age: 40 Year
  Sex: Female

DRUGS (2)
  1. LATANOPROST. [Suspect]
     Active Substance: LATANOPROST
     Indication: GLAUCOMA
  2. LATANOPROST. [Suspect]
     Active Substance: LATANOPROST
     Indication: IRIDOCYCLITIS
     Dosage: UNK (LATANOPROST 0.005% EYE DROPS)
     Route: 061
     Dates: start: 2010

REACTIONS (2)
  - Cytomegalovirus infection [Recovering/Resolving]
  - Viral uveitis [Recovering/Resolving]

NARRATIVE: CASE EVENT DATE: 2010
